FAERS Safety Report 13401784 (Version 2)
Quarter: 2017Q3

REPORT INFORMATION
  Report Type: Spontaneous
  Country: US (occurrence: US)
  Receive Date: 20170404
  Receipt Date: 20170928
  Transmission Date: 20171127
  Serious: Yes (Other)
  Sender: FDA-Public Use
  Company Number: US-JNJFOC-20170401738

PATIENT
  Sex: Male

DRUGS (2)
  1. LEVAQUIN [Suspect]
     Active Substance: LEVOFLOXACIN
     Indication: PYREXIA
     Route: 048
     Dates: start: 20071011, end: 20071015
  2. LEVAQUIN [Suspect]
     Active Substance: LEVOFLOXACIN
     Indication: PYREXIA
     Route: 048
     Dates: start: 20070816, end: 2007

REACTIONS (2)
  - Aortic dissection [Unknown]
  - Aortic aneurysm [Unknown]
